FAERS Safety Report 12396968 (Version 1)
Quarter: 2016Q2

REPORT INFORMATION
  Report Type: Spontaneous
  Country: US (occurrence: None)
  Receive Date: 20160523
  Receipt Date: 20160523
  Transmission Date: 20160815
  Serious: Yes (Disabling)
  Sender: FDA-Public Use
  Company Number: None

PATIENT
  Age: 52 Year
  Sex: Female
  Weight: 68.04 kg

DRUGS (2)
  1. CIPROFLOXACIN. [Suspect]
     Active Substance: CIPROFLOXACIN
     Indication: CYSTITIS
     Route: 048
     Dates: start: 20160201, end: 20160203
  2. VANCO [Concomitant]
     Active Substance: VANCOMYCIN

REACTIONS (9)
  - Diarrhoea [None]
  - Weight decreased [None]
  - Crying [None]
  - Asthenia [None]
  - Pain [None]
  - Drug ineffective [None]
  - Muscle spasms [None]
  - Haemorrhoidal haemorrhage [None]
  - Clostridium test positive [None]

NARRATIVE: CASE EVENT DATE: 20160208
